FAERS Safety Report 20541145 (Version 1)
Quarter: 2022Q1

REPORT INFORMATION
  Report Type: Spontaneous
  Country: IT (occurrence: IT)
  Receive Date: 20220302
  Receipt Date: 20220302
  Transmission Date: 20220424
  Serious: Yes (Other)
  Sender: FDA-Public Use
  Company Number: None

PATIENT
  Age: 56 Year
  Sex: Male

DRUGS (1)
  1. IMRALDI [Suspect]
     Active Substance: ADALIMUMAB
     Indication: Psoriasis
     Route: 058
     Dates: start: 20210506, end: 20220207

REACTIONS (3)
  - Dactylitis [Unknown]
  - Enthesopathy [Unknown]
  - Arthritis [Unknown]

NARRATIVE: CASE EVENT DATE: 20220221
